FAERS Safety Report 12489820 (Version 1)
Quarter: 2016Q2

REPORT INFORMATION
  Report Type: Spontaneous
  Country: NL (occurrence: NL)
  Receive Date: 20160622
  Receipt Date: 20160622
  Transmission Date: 20160815
  Serious: Yes (Life-Threatening)
  Sender: FDA-Public Use
  Company Number: NL-BAYER-2016-117018

PATIENT
  Age: 75 Year
  Sex: Female

DRUGS (4)
  1. CLEMASTINE [Concomitant]
     Active Substance: CLEMASTINE
  2. IMATINIB [Concomitant]
     Active Substance: IMATINIB
  3. DOXYCYCLIN [DOXYCYCLINE] [Concomitant]
     Dosage: 100 MG, BID
  4. REGORAFENIB [Suspect]
     Active Substance: REGORAFENIB
     Indication: GASTROINTESTINAL STROMAL TUMOUR
     Dosage: 80 MG, QD
     Route: 048

REACTIONS (1)
  - Hypertension [Unknown]
